FAERS Safety Report 19047234 (Version 1)
Quarter: 2021Q1

REPORT INFORMATION
  Report Type: Spontaneous
  Country: NL (occurrence: NL)
  Receive Date: 20210323
  Receipt Date: 20210323
  Transmission Date: 20210420
  Serious: Yes (Death, Life-Threatening)
  Sender: FDA-Public Use
  Company Number: NL-FRESENIUS KABI-FK202102898

PATIENT
  Sex: Female
  Weight: 72 kg

DRUGS (6)
  1. GRANISETRON (MANUFACTURER UNKNOWN) [Suspect]
     Active Substance: GRANISETRON
     Indication: VOMITING
     Dosage: 2DD
     Dates: start: 20210111
  2. NADROPARIN CALCIUM [Concomitant]
     Active Substance: NADROPARIN CALCIUM
     Dosage: 2850 IE 1DD
  3. FENTANYL. [Concomitant]
     Active Substance: FENTANYL
  4. FLUTICASONE PROPIONATE. [Concomitant]
     Active Substance: FLUTICASONE PROPIONATE
  5. DOMPERIDONE [Concomitant]
     Active Substance: DOMPERIDONE
     Dosage: ONE?TIME ADMINISTRATION 30MG
     Dates: start: 20210108, end: 20210108
  6. PREDNISONE. [Concomitant]
     Active Substance: PREDNISONE
     Dosage: 70 MG 1DD

REACTIONS (2)
  - Torsade de pointes [Fatal]
  - Electrocardiogram QT prolonged [Fatal]
